FAERS Safety Report 23463180 (Version 1)
Quarter: 2024Q1

REPORT INFORMATION
  Report Type: Spontaneous
  Country: IT (occurrence: IT)
  Receive Date: 20240131
  Receipt Date: 20240131
  Transmission Date: 20240410
  Serious: Yes (Other)
  Sender: FDA-Public Use
  Company Number: IT-ROCHE-3494450

PATIENT
  Age: 71 Year
  Sex: Male
  Weight: 83 kg

DRUGS (16)
  1. CYTARABINE [Suspect]
     Active Substance: CYTARABINE
     Indication: Richter^s syndrome
     Dosage: UNK
     Route: 065
     Dates: start: 20230801, end: 20230830
  2. DEXAMETHASONE SODIUM PHOSPHATE [Suspect]
     Active Substance: DEXAMETHASONE PHOSPHATE\DEXAMETHASONE SODIUM PHOSPHATE
     Indication: Richter^s syndrome
     Route: 065
     Dates: start: 20230801, end: 20230823
  3. DOXORUBICIN HYDROCHLORIDE [Suspect]
     Active Substance: DOXORUBICIN HYDROCHLORIDE
     Indication: Richter^s syndrome
     Route: 065
     Dates: start: 20230516, end: 20230628
  4. RITUXIMAB [Suspect]
     Active Substance: RITUXIMAB
     Indication: Richter^s syndrome
     Route: 065
     Dates: start: 20230919, end: 20231020
  5. RITUXIMAB [Suspect]
     Active Substance: RITUXIMAB
     Dosage: UNK
     Route: 065
     Dates: start: 20230516, end: 20230628
  6. RITUXIMAB [Suspect]
     Active Substance: RITUXIMAB
     Dosage: UNK
     Route: 065
     Dates: start: 20230801, end: 20230823
  7. VINCRISTINE SULFATE [Suspect]
     Active Substance: VINCRISTINE SULFATE
     Indication: Richter^s syndrome
     Route: 065
     Dates: start: 20230516, end: 20230628
  8. GAZYVA [Suspect]
     Active Substance: OBINUTUZUMAB
     Indication: Richter^s syndrome
     Route: 042
     Dates: start: 20230331, end: 20230502
  9. VINORELBINE [Suspect]
     Active Substance: VINORELBINE TARTRATE
     Indication: Richter^s syndrome
     Route: 065
     Dates: start: 20230919, end: 20231020
  10. VENETOCLAX [Suspect]
     Active Substance: VENETOCLAX
     Indication: Richter^s syndrome
     Route: 065
     Dates: start: 20230331, end: 20230502
  11. OXALIPLATIN [Suspect]
     Active Substance: OXALIPLATIN
     Indication: Richter^s syndrome
     Route: 065
     Dates: start: 20230801, end: 20230830
  12. IFOSFAMIDE [Suspect]
     Active Substance: IFOSFAMIDE
     Indication: Richter^s syndrome
     Route: 065
     Dates: start: 20230919, end: 20231020
  13. CYCLOPHOSPHAMIDE [Suspect]
     Active Substance: CYCLOPHOSPHAMIDE
     Indication: Richter^s syndrome
     Route: 065
     Dates: start: 20230516, end: 20230628
  14. GEMCITABINE [Suspect]
     Active Substance: GEMCITABINE
     Indication: Richter^s syndrome
     Route: 065
     Dates: start: 20230919, end: 20231020
  15. PREDNISONE [Suspect]
     Active Substance: PREDNISONE
     Indication: Richter^s syndrome
     Route: 065
     Dates: start: 20230516, end: 20230628
  16. PREDNISOLONE [Suspect]
     Active Substance: PREDNISOLONE
     Indication: Richter^s syndrome
     Route: 065
     Dates: start: 20230919, end: 20231020

REACTIONS (6)
  - Pulmonary embolism [Not Recovered/Not Resolved]
  - Pelvic venous thrombosis [Unknown]
  - Vena cava thrombosis [Unknown]
  - Blood lactate dehydrogenase increased [Unknown]
  - Neoplasm progression [Unknown]
  - Off label use [Unknown]

NARRATIVE: CASE EVENT DATE: 20230801
